FAERS Safety Report 15314834 (Version 2)
Quarter: 2019Q3

REPORT INFORMATION
  Report Type: Report from Study
  Country: US (occurrence: US)
  Receive Date: 20180824
  Receipt Date: 20190725
  Transmission Date: 20191004
  Serious: Yes (Other)
  Sender: FDA-Public Use
  Company Number: US-ROCHE-2173913

PATIENT
  Sex: Female
  Weight: 42 kg

DRUGS (11)
  1. NUTROPIN AQ [Suspect]
     Active Substance: SOMATROPIN
     Indication: HYPOPITUITARISM
     Route: 058
     Dates: start: 20170905
  2. EPIPEN [Concomitant]
     Active Substance: EPINEPHRINE
  3. CLARITIN [Concomitant]
     Active Substance: LORATADINE
  4. NASOCORT [Concomitant]
     Active Substance: BUDESONIDE
  5. ALBUTEROL [SALBUTAMOL] [Concomitant]
     Active Substance: ALBUTEROL
     Route: 065
  6. NUTROPIN AQ [Suspect]
     Active Substance: SOMATROPIN
     Route: 058
     Dates: start: 20180321
  7. MELATONIN [Concomitant]
     Active Substance: MELATONIN
  8. ASMANEX [Concomitant]
     Active Substance: MOMETASONE FUROATE
  9. NUTROPIN AQ [Suspect]
     Active Substance: SOMATROPIN
     Route: 058
     Dates: start: 20171213
  10. BUDESONIDE;FORMOTEROL FUMARATE [Concomitant]
     Active Substance: BUDESONIDE\FORMOTEROL FUMARATE
  11. ZYRTEC [Concomitant]
     Active Substance: CETIRIZINE HYDROCHLORIDE

REACTIONS (2)
  - Asthma [Unknown]
  - Hypersensitivity [Unknown]
